FAERS Safety Report 4313792-7 (Version None)
Quarter: 2004Q1

REPORT INFORMATION
  Report Type: 
  Country: None (occurrence: None)
  Receive Date: 20040305
  Receipt Date: 20040223
  Transmission Date: 20041129
  Serious: Yes (Other)
  Sender: FDA-Public Use
  Company Number: 2004200766GB

PATIENT
  Age: 59 Year
  Sex: Female
  Weight: 65 kg

DRUGS (2)
  1. CELEBREX [Suspect]
     Indication: ARTHRALGIA
     Dosage: ORAL
     Route: 048
     Dates: start: 20030101, end: 20040121
  2. FOSAMAX [Concomitant]

REACTIONS (1)
  - VISUAL ACUITY REDUCED [None]
